FAERS Safety Report 5531969-X (Version None)
Quarter: 2007Q4

REPORT INFORMATION
  Report Type: 
  Country: None (occurrence: None)
  Receive Date: 20071128
  Receipt Date: 20071128
  Transmission Date: 20080405
  Serious: Yes (Hospitalization)
  Sender: FDA-Public Use
  Company Number: None

PATIENT
  Age: 83 Year
  Sex: Male

DRUGS (3)
  1. SIMVASTATIN [Suspect]
     Indication: HYPERLIPIDAEMIA
     Dosage: 80MG   EVERY DAY  PO
     Route: 048
     Dates: start: 20040816, end: 20070806
  2. CITALOPRAM [Suspect]
     Indication: ANXIETY
     Dosage: 10MG  EVERY DAY  PO
     Route: 048
     Dates: start: 20070801, end: 20070906
  3. CITALOPRAM [Suspect]
     Indication: DEPRESSION
     Dosage: 10MG  EVERY DAY  PO
     Route: 048
     Dates: start: 20070801, end: 20070906

REACTIONS (1)
  - MYOPATHY [None]
